FAERS Safety Report 18599999 (Version 2)
Quarter: 2020Q4

REPORT INFORMATION
  Report Type: Spontaneous
  Country: US (occurrence: US)
  Receive Date: 20201210
  Receipt Date: 20201210
  Transmission Date: 20210114
  Serious: No
  Sender: FDA-Public Use
  Company Number: US-GLAXOSMITHKLINE-US2020238048

PATIENT
  Age: 63 Year
  Sex: Female

DRUGS (4)
  1. ABREVA [Suspect]
     Active Substance: DOCOSANOL
     Indication: CHAPPED LIPS
     Dosage: UNK
     Dates: start: 20201127, end: 20201127
  2. ABREVA [Suspect]
     Active Substance: DOCOSANOL
     Indication: STOMATITIS
  3. ABREVA [Suspect]
     Active Substance: DOCOSANOL
     Indication: STOMATITIS
  4. ABREVA [Suspect]
     Active Substance: DOCOSANOL
     Indication: CHAPPED LIPS
     Dosage: UNK
     Dates: start: 20201127, end: 20201127

REACTIONS (5)
  - Product use issue [Unknown]
  - Product package associated injury [Unknown]
  - Skin laceration [Recovered/Resolved]
  - Product use in unapproved indication [Unknown]
  - Product complaint [Unknown]

NARRATIVE: CASE EVENT DATE: 20201127
